FAERS Safety Report 10496568 (Version 1)
Quarter: 2014Q4

REPORT INFORMATION
  Report Type: Spontaneous
  Country: CO (occurrence: CO)
  Receive Date: 20141005
  Receipt Date: 20141005
  Transmission Date: 20150528
  Serious: Yes (Death, Hospitalization)
  Sender: FDA-Public Use
  Company Number: CO-JNJFOC-20140922976

PATIENT
  Sex: Male

DRUGS (1)
  1. RISPERDAL CONSTA [Suspect]
     Active Substance: RISPERIDONE
     Indication: BIPOLAR DISORDER
     Route: 030
     Dates: start: 20080121

REACTIONS (5)
  - Cardio-respiratory arrest [Fatal]
  - Vomiting [Unknown]
  - Inappropriate schedule of drug administration [Unknown]
  - Aspiration [Unknown]
  - Aggression [Fatal]
